FAERS Safety Report 6746703-5 (Version None)
Quarter: 2010Q2

REPORT INFORMATION
  Report Type: 
  Country: None (occurrence: None)
  Receive Date: 20100528
  Receipt Date: 20090609
  Transmission Date: 20101027
  Serious: No
  Sender: FDA-Public Use
  Company Number: A0779198A

PATIENT
  Age: 53 Year
  Sex: Female

DRUGS (5)
  1. VENTOLIN [Suspect]
     Indication: ASTHMA
     Dosage: 2PUFF SIX TIMES PER DAY
     Route: 055
     Dates: start: 19990101, end: 20000101
  2. CITALOPRAM [Concomitant]
  3. MELOXICAM [Concomitant]
  4. IBUPROFEN [Concomitant]
  5. ADVAIR DISKUS 100/50 [Concomitant]
     Dosage: 1PUFF TWICE PER DAY
     Route: 055

REACTIONS (5)
  - CHEST DISCOMFORT [None]
  - COUGH [None]
  - DRUG INEFFECTIVE [None]
  - DYSPNOEA [None]
  - NASOPHARYNGITIS [None]
